FAERS Safety Report 8797491 (Version 1)
Quarter: 2012Q4

REPORT INFORMATION
  Report Type: 
  Country: CN (occurrence: CN)
  Receive Date: 20120919
  Receipt Date: 20120919
  Transmission Date: 20130627
  Serious: Yes (Other)
  Sender: FDA-Public Use
  Company Number: CN-ROCHE-1126861

PATIENT
  Age: 2 Year
  Sex: Female
  Weight: 12 kg

DRUGS (1)
  1. ROCEPHIN [Suspect]
     Indication: INFECTION
     Route: 041
     Dates: start: 20111017, end: 20111017

REACTIONS (4)
  - Anaemia haemolytic autoimmune [Unknown]
  - Tracheobronchitis [Unknown]
  - Dyspnoea [Recovering/Resolving]
  - Skin discolouration [Unknown]
